FAERS Safety Report 7756933-1 (Version None)
Quarter: 2011Q3

REPORT INFORMATION
  Report Type: 
  Country: None (occurrence: None)
  Receive Date: 20110916
  Receipt Date: 20110902
  Transmission Date: 20111222
  Serious: Yes (Other)
  Sender: FDA-Public Use
  Company Number: JP-GLAXOSMITHKLINE-B0745010A

PATIENT
  Age: 77 Year
  Sex: Female
  Weight: 53 kg

DRUGS (11)
  1. PHENLASE [Concomitant]
     Route: 048
  2. MAGMITT [Concomitant]
     Route: 048
  3. RIZABEN [Concomitant]
     Dosage: 4DROP PER DAY
     Route: 031
     Dates: end: 20110810
  4. TOWAMIN [Concomitant]
     Route: 048
  5. BESASTAR SR [Concomitant]
     Dosage: 200MG PER DAY
     Route: 048
     Dates: end: 20110810
  6. MOTILIUM [Concomitant]
     Route: 065
  7. PATANOL [Concomitant]
     Dosage: 4DROP PER DAY
     Route: 031
     Dates: end: 20110810
  8. LIPITOR [Concomitant]
     Dosage: 10MG PER DAY
     Route: 048
     Dates: end: 20110810
  9. ADALAT [Concomitant]
     Dosage: 15MG PER DAY
     Route: 048
     Dates: end: 20110810
  10. VALTREX [Suspect]
     Indication: HERPES ZOSTER
     Dosage: 3000MG PER DAY
     Route: 048
     Dates: start: 20110803, end: 20110809
  11. TOWARAT L [Concomitant]
     Route: 048

REACTIONS (3)
  - ASTHENIA [None]
  - DIZZINESS [None]
  - RENAL FAILURE ACUTE [None]
